FAERS Safety Report 8680013 (Version 2)
Quarter: 2013Q1

REPORT INFORMATION
  Report Type: Spontaneous
  Country: US (occurrence: None)
  Receive Date: 20120706
  Receipt Date: 20130219
  Transmission Date: 20140127
  Serious: Yes (Other)
  Sender: FDA-Public Use
  Company Number: DSU-2012-05233

PATIENT
  Age: 47 Year
  Sex: Male

DRUGS (6)
  1. OLMESARTAN MEDOXOMIL [Suspect]
     Indication: HYPERTENSION
     Dosage: PER ORAL
     Route: 048
     Dates: start: 2006, end: 20090709
  2. XANAX [Concomitant]
  3. NIFEDIAC [Concomitant]
  4. HYDROCHLOROTHIAZIDE [Concomitant]
  5. ZYRTEC [Concomitant]
  6. VITAMINS [Concomitant]

REACTIONS (6)
  - Gastroenteritis Escherichia coli [None]
  - Weight decreased [None]
  - Dehydration [None]
  - Renal failure acute [None]
  - Gastritis [None]
  - Helicobacter test positive [None]
